FAERS Safety Report 11938821 (Version 1)
Quarter: 2016Q1

REPORT INFORMATION
  Report Type: Spontaneous
  Country: CA (occurrence: CA)
  Receive Date: 20160122
  Receipt Date: 20160122
  Transmission Date: 20160526
  Serious: Yes (Other)
  Sender: FDA-Public Use
  Company Number: CA-TEVA-627403ACC

PATIENT
  Age: 53 Year
  Sex: Female

DRUGS (1)
  1. CEFALEXIN [Suspect]
     Active Substance: CEPHALEXIN
     Indication: TOOTH INFECTION
     Route: 065

REACTIONS (5)
  - Osteitis [Unknown]
  - Haematochezia [Unknown]
  - Paraesthesia [Unknown]
  - Joint stiffness [Unknown]
  - Swollen tongue [Unknown]
